FAERS Safety Report 16387583 (Version 1)
Quarter: 2019Q2

REPORT INFORMATION
  Report Type: Spontaneous
  Country: GB (occurrence: GB)
  Receive Date: 20190604
  Receipt Date: 20190604
  Transmission Date: 20190711
  Serious: Yes (Hospitalization)
  Sender: FDA-Public Use
  Company Number: GB-MICRO LABS LIMITED-ML2019-01360

PATIENT
  Age: 97 Year
  Sex: Female

DRUGS (19)
  1. TAMSULOSIN [Concomitant]
     Active Substance: TAMSULOSIN
  2. DOXYCYCLINE. [Concomitant]
     Active Substance: DOXYCYCLINE
  3. CANDESARTAN. [Concomitant]
     Active Substance: CANDESARTAN
  4. FUROSEMIDE. [Concomitant]
     Active Substance: FUROSEMIDE
  5. ANORO ELLIPTA [Concomitant]
     Active Substance: UMECLIDINIUM BROMIDE\VILANTEROL TRIFENATATE
  6. FLUCONAZOLE. [Concomitant]
     Active Substance: FLUCONAZOLE
  7. ACETYLSALICYLIC ACID [Concomitant]
     Active Substance: ASPIRIN
  8. CARBOCISTEINE [Concomitant]
     Active Substance: CARBOCYSTEINE
  9. PREDNISOLONE. [Concomitant]
     Active Substance: PREDNISOLONE
  10. OMEPRAZOLE. [Concomitant]
     Active Substance: OMEPRAZOLE
  11. CONOTRANE [Concomitant]
  12. CASSIA [Concomitant]
  13. PARACETAMOL [Concomitant]
     Active Substance: ACETAMINOPHEN
  14. FINASTERIDE. [Concomitant]
     Active Substance: FINASTERIDE
  15. LAXIDO [Concomitant]
     Active Substance: POLYETHYLENE GLYCOL 3350\POTASSIUM CHLORIDE\SODIUM BICARBONATE\SODIUM CHLORIDE
  16. AMOXICILLIN/CLAVULANIC ACID [Suspect]
     Active Substance: AMOXICILLIN\CLAVULANIC ACID
     Indication: OSTEOMYELITIS
     Route: 048
     Dates: start: 20190403, end: 20190409
  17. FOLIC ACID. [Concomitant]
     Active Substance: FOLIC ACID
  18. FERROUS FUMARATE [Concomitant]
     Active Substance: FERROUS FUMARATE
  19. SALBUTAMOL [Concomitant]
     Active Substance: ALBUTEROL

REACTIONS (6)
  - Abdominal pain [Recovering/Resolving]
  - Hypophagia [Unknown]
  - Hypokalaemia [Unknown]
  - Clostridium difficile infection [Recovering/Resolving]
  - Diarrhoea [Unknown]
  - Acute kidney injury [Unknown]

NARRATIVE: CASE EVENT DATE: 20190418
